FAERS Safety Report 18701565 (Version 1)
Quarter: 2021Q1

REPORT INFORMATION
  Report Type: Spontaneous
  Country: GB (occurrence: GB)
  Receive Date: 20210105
  Receipt Date: 20210105
  Transmission Date: 20210419
  Serious: Yes (Other)
  Sender: FDA-Public Use
  Company Number: GB-MYLANLABS-2020M1106799

PATIENT
  Age: 59 Year
  Sex: Female
  Weight: 74 kg

DRUGS (13)
  1. GABAPENTIN. [Suspect]
     Active Substance: GABAPENTIN
     Indication: PRODUCT USED FOR UNKNOWN INDICATION
     Dosage: TAKE ONE DAILY FOR 2?3 DAYS AND THEN ONE TWICE A DAY FOR 2?3 DAYS AND...
     Dates: start: 20201207
  2. AMITRIPTYLINE HYDROCHLORIDE. [Concomitant]
     Active Substance: AMITRIPTYLINE HYDROCHLORIDE
     Dosage: EACH NIGHT
     Dates: start: 20200921, end: 20201019
  3. INFLUENZA VIRUS [Concomitant]
     Active Substance: INFLUENZA VIRUS VACCINE
     Dosage: UNK
     Dates: start: 20201205, end: 20201206
  4. LATANOPROST. [Concomitant]
     Active Substance: LATANOPROST
     Dosage: AT NIGHT ? LEFT EYE
     Dates: start: 20200721
  5. NAPROXEN. [Concomitant]
     Active Substance: NAPROXEN
     Dosage: WITH FOOD,
     Dates: start: 20201102
  6. ACICLOVIR [Concomitant]
     Active Substance: ACYCLOVIR
     Dosage: FOR 5 DAYS
     Dates: start: 20201119, end: 20201124
  7. FENBID [Concomitant]
     Active Substance: IBUPROFEN
     Dosage: APPLY, TO AFFECTED AREA
     Dates: start: 20200917, end: 20201001
  8. DULOXETINE. [Concomitant]
     Active Substance: DULOXETINE
     Dosage: 1 DOSAGE FORM, QD
     Dates: start: 20200928, end: 20201026
  9. SODIUM ALGINATE [Concomitant]
     Active Substance: SODIUM ALGINATE
     Dosage: IN THE MORNING
     Dates: start: 20200721
  10. IBUPROFEN. [Concomitant]
     Active Substance: IBUPROFEN
     Dosage: 3 DOSAGE FORM, PRN
     Dates: start: 20200917, end: 20200924
  11. DOXYCYCLINE. [Concomitant]
     Active Substance: DOXYCYCLINE
     Dosage: 2 DOSAGE FORM, QD
     Dates: start: 20200928, end: 20201005
  12. HYLO?FORTE [Concomitant]
     Active Substance: HYALURONATE SODIUM
     Dosage: ONE DROP EACH EYE
     Dates: start: 20200721
  13. LANSOPRAZOLE. [Concomitant]
     Active Substance: LANSOPRAZOLE
     Dosage: 1 DOSAGE FORM, QD
     Dates: start: 20201102

REACTIONS (2)
  - Chest discomfort [Unknown]
  - Rash [Recovered/Resolved]

NARRATIVE: CASE EVENT DATE: 202012
